FAERS Safety Report 9640011 (Version 2)
Quarter: 2013Q4

REPORT INFORMATION
  Report Type: Spontaneous
  Country: US (occurrence: US)
  Receive Date: 20131023
  Receipt Date: 20131204
  Transmission Date: 20140711
  Serious: Yes (Disabling, Other)
  Sender: FDA-Public Use
  Company Number: PHEH2013US021785

PATIENT
  Sex: Female

DRUGS (3)
  1. COMBIPATCH [Suspect]
     Indication: HORMONE REPLACEMENT THERAPY
     Dosage: 0.05/0.25MG, BIW
     Route: 062
  2. ANTIHYPERTENSIVE DRUGS [Concomitant]
     Dosage: UNK UKN, UNK
  3. ANTIDEPRESSANTS [Concomitant]
     Dosage: UNK UKN, UNK

REACTIONS (7)
  - Cerebrovascular accident [Unknown]
  - Macular scar [Unknown]
  - Grip strength decreased [Unknown]
  - Night sweats [Unknown]
  - Hot flush [Unknown]
  - Drug ineffective [Unknown]
  - Product adhesion issue [Unknown]
